FAERS Safety Report 19683471 (Version 3)
Quarter: 2021Q4

REPORT INFORMATION
  Report Type: Report from Study
  Country: ZA (occurrence: ZA)
  Receive Date: 20210811
  Receipt Date: 20211122
  Transmission Date: 20220303
  Serious: Yes (Death, Hospitalization, Other)
  Sender: FDA-Public Use
  Company Number: ZA-NOVOPROD-835819

PATIENT
  Age: 60 Year
  Sex: Male

DRUGS (8)
  1. AMLODIPINE BESYLATE [Concomitant]
     Active Substance: AMLODIPINE BESYLATE
     Indication: Hypertension
     Dosage: 5 MG
     Route: 048
     Dates: end: 202108
  2. GLICLAZIDE [Concomitant]
     Active Substance: GLICLAZIDE
     Indication: Diabetes mellitus
     Dosage: 60 MG
     Route: 048
     Dates: end: 202108
  3. METFORMIN [Concomitant]
     Active Substance: METFORMIN HYDROCHLORIDE
     Indication: Diabetes mellitus
     Dosage: 1000 MG
     Route: 048
     Dates: end: 202108
  4. UROMAX [TESTOSTERONE UNDECANOATE] [Concomitant]
     Indication: Prostatic disorder
     Dosage: 0.4 MG
     Route: 048
     Dates: end: 202108
  5. ECOTRIN [Concomitant]
     Active Substance: ASPIRIN
     Indication: Anticoagulant therapy
     Dosage: 81.00 MG
     Route: 048
     Dates: end: 202108
  6. IRON POLYMALTOSE [Concomitant]
     Active Substance: IRON POLYMALTOSE
     Indication: Iron deficiency
     Dosage: 100 MG
     Route: 048
     Dates: end: 202108
  7. SIMVASTATIN [Concomitant]
     Active Substance: SIMVASTATIN
     Indication: Blood cholesterol
     Dosage: 20 MG
     Route: 048
     Dates: end: 202108
  8. INSULIN ASPART [Suspect]
     Active Substance: INSULIN ASPART
     Indication: Diabetes mellitus
     Dosage: UNK
     Route: 065
     Dates: end: 202108

REACTIONS (3)
  - Death [Fatal]
  - Vascular graft [Unknown]
  - Pneumonia [Unknown]

NARRATIVE: CASE EVENT DATE: 20210820
